FAERS Safety Report 19245122 (Version 1)
Quarter: 2021Q2

REPORT INFORMATION
  Report Type: Spontaneous
  Country: US (occurrence: US)
  Receive Date: 20210512
  Receipt Date: 20210512
  Transmission Date: 20210717
  Serious: No
  Sender: FDA-Public Use
  Company Number: US-AUROBINDO-AUR-APL-2021-015393

PATIENT
  Sex: Male

DRUGS (2)
  1. KHAPZORY [Suspect]
     Active Substance: LEVOLEUCOVORIN DISODIUM
     Indication: PRODUCT USED FOR UNKNOWN INDICATION
     Dosage: 400 MILLIGRAM
     Route: 065
  2. KHAPZORY [Suspect]
     Active Substance: LEVOLEUCOVORIN DISODIUM
     Dosage: 420 MILLIGRAM, 2 WEEKS
     Route: 042

REACTIONS (2)
  - Therapy change [Unknown]
  - Product dose omission issue [Unknown]

NARRATIVE: CASE EVENT DATE: 20210401
